FAERS Safety Report 4884894-1 (Version None)
Quarter: 2006Q1

REPORT INFORMATION
  Report Type: 
  Country: None (occurrence: None)
  Receive Date: 20060117
  Receipt Date: 20060111
  Transmission Date: 20060701
  Serious: Yes (Other)
  Sender: FDA-Public Use
  Company Number: MC200600024

PATIENT
  Sex: Male
  Weight: 85 kg

DRUGS (2)
  1. ANGIOMAX [Suspect]
     Dosage: SEE IMAGE
     Dates: start: 20051221, end: 20051221
  2. ANGIOMAX [Suspect]
     Dosage: SEE IMAGE
     Dates: start: 20051221

REACTIONS (1)
  - CEREBRAL ARTERY THROMBOSIS [None]
